FAERS Safety Report 13509502 (Version 1)
Quarter: 2017Q2

REPORT INFORMATION
  Report Type: Spontaneous
  Country: US (occurrence: US)
  Receive Date: 20170503
  Receipt Date: 20170503
  Transmission Date: 20170830
  Serious: No
  Sender: FDA-Public Use
  Company Number: US-SA-2017SA034424

PATIENT
  Age: 55 Year
  Sex: Female

DRUGS (13)
  1. AMLODIPINE [Concomitant]
     Active Substance: AMLODIPINE BESYLATE
  2. METOLAZONE. [Concomitant]
     Active Substance: METOLAZONE
  3. COLCHICINE. [Concomitant]
     Active Substance: COLCHICINE
  4. ISOSORBIDE DINITRATE. [Concomitant]
     Active Substance: ISOSORBIDE DINITRATE
  5. FOSINOPRIL [Concomitant]
     Active Substance: FOSINOPRIL
  6. ULORIC [Concomitant]
     Active Substance: FEBUXOSTAT
  7. POTASSIUM CHLORIDE. [Concomitant]
     Active Substance: POTASSIUM CHLORIDE
  8. PRALUENT [Suspect]
     Active Substance: ALIROCUMAB
     Route: 058
     Dates: start: 20170125
  9. FUROSEMIDE. [Concomitant]
     Active Substance: FUROSEMIDE
  10. ALIROCUMAB PREFILLED PEN [Concomitant]
     Active Substance: ALIROCUMAB
     Dates: start: 20170125
  11. HYDROCHLOROTHIAZIDE/IRBESARTAN [Concomitant]
  12. METOPROLOL. [Concomitant]
     Active Substance: METOPROLOL
  13. HYDRALAZINE [Concomitant]
     Active Substance: HYDRALAZINE HYDROCHLORIDE

REACTIONS (3)
  - Pruritus [Recovered/Resolved]
  - Local swelling [Recovered/Resolved]
  - Swelling face [Recovered/Resolved]

NARRATIVE: CASE EVENT DATE: 2017
